FAERS Safety Report 9611595 (Version 2)
Quarter: 2013Q4

REPORT INFORMATION
  Report Type: Spontaneous
  Country: BR (occurrence: BR)
  Receive Date: 20131010
  Receipt Date: 20131014
  Transmission Date: 20140711
  Serious: Yes (Hospitalization, Other)
  Sender: FDA-Public Use
  Company Number: BR-ROCHE-1286635

PATIENT
  Sex: Female
  Weight: 72 kg

DRUGS (3)
  1. XELODA [Suspect]
     Indication: BRAIN NEOPLASM
     Route: 065
     Dates: start: 2010
  2. TYKERB [Suspect]
     Indication: BRAIN NEOPLASM
     Route: 065
     Dates: start: 2010
  3. OXCARBAZEPINE [Concomitant]

REACTIONS (4)
  - Disease progression [Unknown]
  - Brain neoplasm [Unknown]
  - Convulsion [Not Recovered/Not Resolved]
  - Hepatic neoplasm [Not Recovered/Not Resolved]
